FAERS Safety Report 6680276-0 (Version None)
Quarter: 2010Q2

REPORT INFORMATION
  Report Type: 
  Country: None (occurrence: None)
  Receive Date: 20100408
  Receipt Date: 20100325
  Transmission Date: 20101027
  Serious: Yes (Hospitalization)
  Sender: FDA-Public Use
  Company Number: DSJ-2010-05015

PATIENT
  Age: 68 Year
  Sex: Female

DRUGS (7)
  1. BENICAR [Suspect]
     Indication: HYPERTENSION
     Dosage: 40 MG (1 IN 1 D), PER ORAL
     Route: 048
     Dates: start: 20081117
  2. LEVOTHYROXINE SODIUM (LEVOTHYROXINE SODIUM) (LEVOTHYROXINE SODIUM) [Concomitant]
  3. FLUOXETINE [Concomitant]
  4. METFORMIN HCL [Concomitant]
  5. CIPROFIBRATE (CIPROFIBRATE) (CIPROFIBRATE) [Concomitant]
  6. VITAMIN B1/VITAMIN B6/VITAMIN B12 [Concomitant]
  7. OMEPRAZOLE [Concomitant]

REACTIONS (2)
  - EMBOLISM [None]
  - THROMBOSIS [None]
